FAERS Safety Report 5932540-8 (Version None)
Quarter: 2008Q4

REPORT INFORMATION
  Report Type: 
  Country: None (occurrence: None)
  Receive Date: 20081028
  Receipt Date: 20081014
  Transmission Date: 20090506
  Serious: Yes (Other)
  Sender: FDA-Public Use
  Company Number: CA-BAYER-200836018NA

PATIENT
  Age: 13 Year
  Sex: Female

DRUGS (1)
  1. YASMIN [Suspect]
     Indication: ABDOMINAL PAIN UPPER
     Route: 048
     Dates: start: 20080801

REACTIONS (1)
  - SUICIDAL IDEATION [None]
